FAERS Safety Report 9298286 (Version 1)
Quarter: 2013Q2

REPORT INFORMATION
  Report Type: Spontaneous
  Country: US (occurrence: US)
  Receive Date: 20130520
  Receipt Date: 20130520
  Transmission Date: 20140414
  Serious: Yes (Other)
  Sender: FDA-Public Use
  Company Number: US-AMGEN-USASP2013035461

PATIENT
  Sex: 0

DRUGS (7)
  1. PROCRIT [Suspect]
     Indication: PRODUCT USED FOR UNKNOWN INDICATION
     Dosage: 1 CC, QWK
  2. INTERFERON [Suspect]
     Dosage: UNK
  3. RIBAVIRIN [Suspect]
     Indication: ATTENTION DEFICIT/HYPERACTIVITY DISORDER
     Dosage: UNK
  4. NEUPOGEN [Concomitant]
  5. LACTULOSE [Concomitant]
     Dosage: UNK
  6. VICTRELIS [Concomitant]
     Dosage: UNK
  7. LORATADINE [Concomitant]
     Dosage: 10 MG, UNK

REACTIONS (10)
  - Plicated tongue [Unknown]
  - Glossodynia [Unknown]
  - Hepatic cirrhosis [Unknown]
  - Influenza like illness [Unknown]
  - Platelet count decreased [Unknown]
  - Nightmare [Unknown]
  - Therapeutic response decreased [Unknown]
  - Sleep disorder [Unknown]
  - Feeling abnormal [Unknown]
  - Pruritus [Unknown]
